FAERS Safety Report 16753574 (Version 11)
Quarter: 2024Q1

REPORT INFORMATION
  Report Type: Spontaneous
  Country: GB (occurrence: GB)
  Receive Date: 20190829
  Receipt Date: 20240320
  Transmission Date: 20240410
  Serious: Yes (Hospitalization, Other)
  Sender: FDA-Public Use
  Company Number: None

PATIENT
  Age: 89 Year
  Sex: Male

DRUGS (24)
  1. FLUCONAZOLE [Suspect]
     Active Substance: FLUCONAZOLE
     Indication: Product used for unknown indication
     Dosage: ADDITIONAL INFORMATION: MISUSE
     Route: 050
  2. FLUCONAZOLE [Suspect]
     Active Substance: FLUCONAZOLE
     Dosage: (DOSAGE TEXT: UNK) (ADDITIONAL INFORMATION ON DRUG: ADDITIONAL INFO: MEDICATION ERROR, MISUSE MEDICA
     Route: 050
  3. ACYCLOVIR [Suspect]
     Active Substance: ACYCLOVIR
     Indication: Product used for unknown indication
     Dosage: (DOSAGE TEXT: UNK) (ADDITIONAL INFORMATION:  MEDICATION ERROR, MISUSE MEDICATION ERROR DRUG) AT AN U
     Route: 065
  4. ACYCLOVIR [Suspect]
     Active Substance: ACYCLOVIR
     Dosage: ADDITIONAL INFORMATION: MISUSE
     Route: 065
  5. COTRIMOXAZOLE [Suspect]
     Active Substance: SULFAMETHOXAZOLE\TRIMETHOPRIM
     Indication: Product used for unknown indication
     Dosage: (DOSAGE TEXT: UNK, (ADDITIONAL INFORMATION ON DRUG - ADDITIONAL INFO: MEDICATION ERROR, MISUSE MEDIC
     Route: 050
  6. COTRIMOXAZOLE [Suspect]
     Active Substance: SULFAMETHOXAZOLE\TRIMETHOPRIM
     Dosage: UNK
     Route: 065
  7. FRAGMIN [Suspect]
     Active Substance: DALTEPARIN SODIUM
     Indication: Product used for unknown indication
     Dosage: UNK
     Route: 050
  8. FRAGMIN [Suspect]
     Active Substance: DALTEPARIN SODIUM
     Dosage: DOSAGE TEXT - UNK, (ADDITIONAL INFORMATION ON DRUG - ADDITIONAL INFO: MEDICATION ERROR MEDICATION ER
     Route: 065
  9. FRAGMIN [Suspect]
     Active Substance: DALTEPARIN SODIUM
     Dosage: (DOSAGE FROM: SOLUTION FOR INJECTION)
     Route: 065
  10. DEXAMETHASONE SODIUM PHOSPHATE [Suspect]
     Active Substance: DEXAMETHASONE PHOSPHATE\DEXAMETHASONE SODIUM PHOSPHATE
     Indication: Product used for unknown indication
     Dosage: UNK
     Route: 050
  11. DEXAMETHASONE SODIUM PHOSPHATE [Suspect]
     Active Substance: DEXAMETHASONE PHOSPHATE\DEXAMETHASONE SODIUM PHOSPHATE
     Dosage: UNK
     Route: 065
  12. DEXAMETHASONE SODIUM PHOSPHATE [Suspect]
     Active Substance: DEXAMETHASONE PHOSPHATE\DEXAMETHASONE SODIUM PHOSPHATE
     Dosage: DOSAGE TEXT - UNK, (DOSAGE FORM: SOLUTION FOR INJECTION), (ADDITIONAL INFORMATION ON DRUG - ADDITION
     Route: 065
  13. REVLIMID [Suspect]
     Active Substance: LENALIDOMIDE
     Indication: Product used for unknown indication
     Dosage: DOSAGE TEXT - UNK
     Route: 048
  14. REVLIMID [Suspect]
     Active Substance: LENALIDOMIDE
     Dosage: UNK
     Route: 050
  15. NINLARO [Suspect]
     Active Substance: IXAZOMIB CITRATE
     Indication: Product used for unknown indication
     Dosage: 1 DOSAGE FORM, DOSAGE TEXT - 1 DF, PRN; AS NECESSARY, (ADDITIONAL INFORMATION ON DRUG - ADDITIONAL I
     Route: 050
  16. NINLARO [Suspect]
     Active Substance: IXAZOMIB CITRATE
     Dosage: DOSAGE TEXT - UNK, (ADDITIONAL INFORMATION ON DRUG - ADDITIONAL INFO: ROUTE:UNKNOWN MEDICATION ERROR
     Route: 065
  17. LANSOPRAZOLE [Suspect]
     Active Substance: LANSOPRAZOLE
     Indication: Product used for unknown indication
     Dosage: AT AN UNSPECIFIED DOSE AND FREQUENCY, MISUSE
     Route: 050
  18. LANSOPRAZOLE [Suspect]
     Active Substance: LANSOPRAZOLE
     Dosage: UNK
     Route: 065
  19. LENALIDOMIDE [Suspect]
     Active Substance: LENALIDOMIDE
     Indication: Product used for unknown indication
     Dosage: UNK
     Route: 065
  20. LENALIDOMIDE [Suspect]
     Active Substance: LENALIDOMIDE
     Dosage: DOSAGE TEXT - UNK, DOSAGE FORM: CASULE) (ADDITIONAL INFORMATION ON DRUG - ADDITIONAL INFO: MEDICATIO
     Route: 048
  21. LENALIDOMIDE [Suspect]
     Active Substance: LENALIDOMIDE
     Dosage: UNK; ;
     Route: 048
  22. DEXAMETHASONE [Suspect]
     Active Substance: DEXAMETHASONE
     Indication: Product used for unknown indication
     Dosage: DOSAGE TEXT - UNK, (ADDITIONAL INFORMATION ON DRUG - ADDITIONAL INFO: MEDICATION ERROR, MISUSE MEDIC
     Route: 048
  23. DEXAMETHASONE [Suspect]
     Active Substance: DEXAMETHASONE
     Dosage: UNK, MEDICATION ERROR, MISUSE MEDICATAION ERROR
     Route: 065
  24. DALTEPARIN SODIUM [Suspect]
     Active Substance: DALTEPARIN SODIUM
     Indication: Product used for unknown indication
     Route: 065

REACTIONS (3)
  - Lower respiratory tract infection [Unknown]
  - Product dose omission issue [Unknown]
  - Product dose omission issue [Unknown]
